FAERS Safety Report 8557769-4 (Version None)
Quarter: 2012Q3

REPORT INFORMATION
  Report Type: 
  Country: None (occurrence: None)
  Receive Date: 20120801
  Receipt Date: 20120723
  Transmission Date: 20120928
  Serious: Yes (Other)
  Sender: FDA-Public Use
  Company Number: CA-ABBOTT-12P-028-0910733-00

PATIENT
  Sex: Male
  Weight: 75.818 kg

DRUGS (1)
  1. LUPRON DEPOT [Suspect]
     Indication: PROSTATE CANCER
     Dates: start: 20111128, end: 20120229

REACTIONS (9)
  - DIZZINESS [None]
  - HYPOTENSION [None]
  - FALL [None]
  - HAEMOGLOBIN DECREASED [None]
  - ASTHENIA [None]
  - FLANK PAIN [None]
  - MALAISE [None]
  - PROSTATE CANCER METASTATIC [None]
  - FATIGUE [None]
